FAERS Safety Report 4537303-6 (Version None)
Quarter: 2004Q4

REPORT INFORMATION
  Report Type: 
  Country: None (occurrence: None)
  Receive Date: 20041221
  Receipt Date: 20041118
  Transmission Date: 20050328
  Serious: Yes (Death)
  Sender: FDA-Public Use
  Company Number: MK200412-0059-1

PATIENT
  Age: 18 Year
  Sex: Female

DRUGS (1)
  1. MORPHINE SULFATE ER TABLET [Suspect]
     Dosage: 450 MG, ONCE, IT
     Route: 037
     Dates: end: 20030101

REACTIONS (7)
  - ACIDOSIS [None]
  - HYPOTENSION [None]
  - MEDICATION ERROR [None]
  - MYOCLONUS [None]
  - PAIN IN EXTREMITY [None]
  - TACHYCARDIA [None]
  - VENTRICULAR FIBRILLATION [None]
